FAERS Safety Report 14032835 (Version 1)
Quarter: 2017Q4

REPORT INFORMATION
  Report Type: Other
  Country: NL (occurrence: NL)
  Receive Date: 20171002
  Receipt Date: 20171002
  Transmission Date: 20180321
  Serious: Yes (Other)
  Sender: FDA-Public Use
  Company Number: NL-ALSI-201700316

PATIENT
  Age: 26 Year
  Sex: Female

DRUGS (5)
  1. VECURONIUM [Concomitant]
     Active Substance: VECURONIUM BROMIDE
  2. FENTANYL. [Concomitant]
     Active Substance: FENTANYL
  3. MIDAZOLAM [Concomitant]
     Active Substance: MIDAZOLAM HYDROCHLORIDE
  4. NITROUS OXIDE. [Suspect]
     Active Substance: NITROUS OXIDE
     Indication: MAINTENANCE OF ANAESTHESIA
  5. NITROGEN. [Suspect]
     Active Substance: NITROGEN

REACTIONS (3)
  - Off label use [Recovered/Resolved]
  - Air embolism [Recovered/Resolved]
  - Drug interaction [Recovered/Resolved]
